FAERS Safety Report 6540863-7 (Version None)
Quarter: 2010Q1

REPORT INFORMATION
  Report Type: 
  Country: None (occurrence: None)
  Receive Date: 20100118
  Receipt Date: 20100111
  Transmission Date: 20100710
  Serious: Yes (Hospitalization, Other)
  Sender: FDA-Public Use
  Company Number: US-ELI_LILLY_AND_COMPANY-US200912000558

PATIENT
  Age: 54 Year
  Sex: Male
  Weight: 87.528 kg

DRUGS (1)
  1. EFFIENT [Suspect]
     Dosage: 10 MG, DAILY (1/D)
     Dates: start: 20091114

REACTIONS (2)
  - ENCEPHALOPATHY [None]
  - MYOCARDIAL INFARCTION [None]
